FAERS Safety Report 11888008 (Version 1)
Quarter: 2016Q1

REPORT INFORMATION
  Report Type: Spontaneous
  Country: US (occurrence: None)
  Receive Date: 20160104
  Receipt Date: 20160104
  Transmission Date: 20160526
  Serious: No
  Sender: FDA-Public Use
  Company Number: None

PATIENT
  Age: 50 Year
  Sex: Female

DRUGS (1)
  1. NAILENE ANTIFUNGAL TREATMENT [Suspect]
     Active Substance: TOLNAFTATE
     Indication: ONYCHOMYCOSIS
     Dosage: TWICE DAILY, APPLIED TO A SURFCD USUALLY THE SKIN
     Dates: start: 20151127, end: 20160101

REACTIONS (3)
  - Product label confusion [None]
  - Drug ineffective [None]
  - Product name confusion [None]

NARRATIVE: CASE EVENT DATE: 20151127
